FAERS Safety Report 7896317-9 (Version None)
Quarter: 2011Q4

REPORT INFORMATION
  Report Type: 
  Country: None (occurrence: None)
  Receive Date: 20111106
  Receipt Date: 20110908
  Transmission Date: 20120403
  Serious: No
  Sender: FDA-Public Use
  Company Number: US-AMGEN-USASP2011046021

PATIENT
  Age: 62 Year
  Sex: Female

DRUGS (7)
  1. RITUXAN [Concomitant]
  2. ZOFRAN [Concomitant]
  3. ENBREL [Suspect]
     Indication: RHEUMATOID ARTHRITIS
     Dosage: 50 MG, QWK
     Dates: start: 20110808
  4. ORENCIA [Concomitant]
  5. ACTEMRA [Concomitant]
  6. BENADRYL [Concomitant]
  7. REMICADE [Concomitant]

REACTIONS (17)
  - FEELING HOT [None]
  - URTICARIA [None]
  - ARTHRITIS [None]
  - SKIN FISSURES [None]
  - INJECTION SITE SWELLING [None]
  - NAUSEA [None]
  - SKIN DISCOLOURATION [None]
  - INJECTION SITE ERYTHEMA [None]
  - INJECTION SITE WARMTH [None]
  - INJECTION SITE MASS [None]
  - INJECTION SITE INDURATION [None]
  - INJECTION SITE LACERATION [None]
  - ABDOMINAL DISCOMFORT [None]
  - INJECTION SITE HAEMORRHAGE [None]
  - INJECTION SITE URTICARIA [None]
  - INJECTION SITE REACTION [None]
  - SKIN INDURATION [None]
